FAERS Safety Report 23125504 (Version 2)
Quarter: 2024Q3

REPORT INFORMATION
  Report Type: Spontaneous
  Country: US (occurrence: US)
  Receive Date: 20231030
  Receipt Date: 20240806
  Transmission Date: 20241016
  Serious: No
  Sender: SANOFI AVENTIS
  Company Number: US-SA-SAC20231025000152

PATIENT
  Age: 53 Year
  Sex: Female
  Weight: 71.655 kg

DRUGS (11)
  1. DUPIXENT [Suspect]
     Active Substance: DUPILUMAB
     Indication: Dermatitis atopic
     Dosage: 300 MG, QOW
     Route: 058
     Dates: start: 20231007
  2. DUPIXENT [Suspect]
     Active Substance: DUPILUMAB
     Indication: Asthma
  3. DUPIXENT [Suspect]
     Active Substance: DUPILUMAB
     Indication: Dermatitis allergic
  4. TRIAMCINOLONE ACETONIDE [Concomitant]
     Active Substance: TRIAMCINOLONE ACETONIDE
  5. RESTASIS [Concomitant]
     Active Substance: CYCLOSPORINE
  6. OLANZAPINE [Concomitant]
     Active Substance: OLANZAPINE
  7. MONTELUKAST SODIUM [Concomitant]
     Active Substance: MONTELUKAST SODIUM
  8. MELATONIN [Concomitant]
     Active Substance: MELATONIN
  9. BREO ELLIPTA [Concomitant]
     Active Substance: FLUTICASONE FUROATE\VILANTEROL TRIFENATATE
  10. ALLEGRA ALLERGY [Concomitant]
     Active Substance: FEXOFENADINE HYDROCHLORIDE
     Dosage: UNK
  11. HYDROCHLOROTHIAZIDE [Concomitant]
     Active Substance: HYDROCHLOROTHIAZIDE
     Dosage: UNK

REACTIONS (4)
  - Injection site pain [Unknown]
  - Product use in unapproved indication [Unknown]
  - Accidental exposure to product [Unknown]
  - Exposure via skin contact [Unknown]

NARRATIVE: CASE EVENT DATE: 20231007
